FAERS Safety Report 20112221 (Version 1)
Quarter: 2021Q4

REPORT INFORMATION
  Report Type: Spontaneous
  Country: US (occurrence: None)
  Receive Date: 20211125
  Receipt Date: 20211125
  Transmission Date: 20220304
  Serious: No
  Sender: FDA-Public Use
  Company Number: US-Merck Healthcare KGaA-9281235

PATIENT
  Age: 49 Year
  Sex: Male

DRUGS (1)
  1. MAVENCLAD [Suspect]
     Active Substance: CLADRIBINE
     Indication: Multiple sclerosis
     Route: 048

REACTIONS (2)
  - Pyrexia [Recovered/Resolved]
  - Rash [Recovered/Resolved]

NARRATIVE: CASE EVENT DATE: 20211117
